FAERS Safety Report 24553610 (Version 1)
Quarter: 2024Q4

REPORT INFORMATION
  Report Type: Spontaneous
  Country: US (occurrence: US)
  Receive Date: 20241028
  Receipt Date: 20241028
  Transmission Date: 20250115
  Serious: No
  Sender: ROCHE
  Company Number: US-ROCHE-3538141

PATIENT
  Age: 9 Year
  Sex: Female

DRUGS (1)
  1. NUTROPIN AQ [Suspect]
     Active Substance: SOMATROPIN
     Indication: Turner^s syndrome
     Route: 058

REACTIONS (2)
  - Burning sensation [Unknown]
  - Injection site pain [Unknown]
